FAERS Safety Report 18580519 (Version 1)
Quarter: 2020Q4

REPORT INFORMATION
  Report Type: Spontaneous
  Country: US (occurrence: US)
  Receive Date: 20201204
  Receipt Date: 20201204
  Transmission Date: 20210114
  Serious: No
  Sender: FDA-Public Use
  Company Number: US-PFIZER INC-2020476531

PATIENT
  Age: 65 Year
  Sex: Male
  Weight: 79.38 kg

DRUGS (3)
  1. CHANTIX [Suspect]
     Active Substance: VARENICLINE TARTRATE
     Indication: CHRONIC OBSTRUCTIVE PULMONARY DISEASE
     Dosage: 1 MG, 2X/DAY
     Route: 048
     Dates: start: 201908
  2. CHANTIX [Suspect]
     Active Substance: VARENICLINE TARTRATE
     Indication: SMOKING CESSATION THERAPY
  3. PLAVIX [Concomitant]
     Active Substance: CLOPIDOGREL BISULFATE
     Indication: HYPERTENSION
     Dosage: 75 MG, 1X/DAY
     Route: 048

REACTIONS (4)
  - Impatience [Unknown]
  - Anger [Unknown]
  - Nightmare [Recovered/Resolved]
  - Agitation [Unknown]
